FAERS Safety Report 5820296-9 (Version None)
Quarter: 2008Q3

REPORT INFORMATION
  Report Type: 
  Country: None (occurrence: None)
  Receive Date: 20080724
  Receipt Date: 20070801
  Transmission Date: 20090109
  Serious: Yes (Other)
  Sender: FDA-Public Use
  Company Number: A0654062A

PATIENT
  Age: 56 Year
  Sex: Female

DRUGS (6)
  1. AVANDIA [Suspect]
     Dosage: 4MG TWICE PER DAY
     Route: 048
     Dates: start: 20050101
  2. GLUCOPHAGE [Concomitant]
  3. VITAMIN B-12 [Concomitant]
  4. IRON TABLETS [Concomitant]
  5. FOLIC ACID [Concomitant]
  6. ASCORBIC ACID [Concomitant]

REACTIONS (2)
  - ANAEMIA [None]
  - RED BLOOD CELL COUNT DECREASED [None]
